FAERS Safety Report 8549655-0 (Version None)
Quarter: 2012Q3

REPORT INFORMATION
  Report Type: 
  Country: None (occurrence: None)
  Receive Date: 20120717
  Receipt Date: 20120627
  Transmission Date: 20120928
  Serious: Yes (Hospitalization)
  Sender: FDA-Public Use
  Company Number: EUS-2012-00446

PATIENT
  Age: 30 Year
  Sex: Male

DRUGS (1)
  1. ASPARAGINASE (UNSPECIFIED) (ASPARAGINASE) [Suspect]
     Indication: ACUTE LYMPHOCYTIC LEUKAEMIA

REACTIONS (3)
  - HAEMORRHAGIC STROKE [None]
  - CEREBRAL VENOUS THROMBOSIS [None]
  - HAEMORRHAGE INTRACRANIAL [None]
